FAERS Safety Report 9953363 (Version 1)
Quarter: 2014Q1

REPORT INFORMATION
  Report Type: Report from Study
  Country: US (occurrence: US)
  Receive Date: 20140304
  Receipt Date: 20140304
  Transmission Date: 20141002
  Serious: No
  Sender: FDA-Public Use
  Company Number: US-ABBVIE-13P-163-1073569-00

PATIENT
  Age: 28 Year
  Sex: Male

DRUGS (2)
  1. HUMIRA [Suspect]
     Indication: PSORIASIS
     Dates: start: 201209
  2. HYDROCODONE [Concomitant]
     Indication: BACK PAIN

REACTIONS (3)
  - Injection site pain [Recovered/Resolved]
  - Injection site bruising [Unknown]
  - Injection site erythema [Unknown]
